FAERS Safety Report 7344797-X (Version None)
Quarter: 2011Q1

REPORT INFORMATION
  Report Type: 
  Country: None (occurrence: None)
  Receive Date: 20110307
  Receipt Date: 20110307
  Transmission Date: 20110831
  Serious: Yes (Other)
  Sender: FDA-Public Use
  Company Number: None

PATIENT
  Age: 60 Year
  Sex: Male
  Weight: 117.9352 kg

DRUGS (4)
  1. WELLBUTRIN [Concomitant]
  2. NUVIGIL [Suspect]
     Indication: DEPRESSION
     Dates: start: 20091001, end: 20110115
  3. NUVIGIL [Suspect]
     Indication: SOMNOLENCE
     Dates: start: 20091001, end: 20110115
  4. PROZAC [Concomitant]

REACTIONS (3)
  - DEREALISATION [None]
  - ABNORMAL BEHAVIOUR [None]
  - PANIC DISORDER [None]
